FAERS Safety Report 8765399 (Version 1)
Quarter: 2012Q4

REPORT INFORMATION
  Report Type: 
  Country: US (occurrence: US)
  Receive Date: 20120831
  Receipt Date: 20120831
  Transmission Date: 20130627
  Serious: No
  Sender: FDA-Public Use
  Company Number: US-ASTRAZENECA-2011SE52781

PATIENT
  Age: 56 Year
  Sex: Female

DRUGS (2)
  1. SYMBICORT PMDI [Suspect]
     Route: 055
  2. CRESTOR [Suspect]
     Route: 048

REACTIONS (6)
  - Laryngitis [Unknown]
  - Influenza [Unknown]
  - Malaise [Unknown]
  - Nasopharyngitis [Unknown]
  - Gastroenteritis viral [Unknown]
  - Oropharyngeal pain [Unknown]
